FAERS Safety Report 8392849-8 (Version None)
Quarter: 2012Q2

REPORT INFORMATION
  Report Type: 
  Country: None (occurrence: None)
  Receive Date: 20120529
  Receipt Date: 20110407
  Transmission Date: 20120825
  Serious: No
  Sender: FDA-Public Use
  Company Number: US-MYLANLABS-2011S1007472

PATIENT
  Age: 72 Year
  Sex: Male
  Weight: 68.04 kg

DRUGS (3)
  1. ATENOLOL [Concomitant]
  2. LORATADINE [Concomitant]
     Indication: MULTIPLE ALLERGIES
  3. ZOLPIDEM TARTRATE [Suspect]
     Indication: INSOMNIA
     Route: 048
     Dates: start: 20110329, end: 20110406

REACTIONS (2)
  - INSOMNIA [None]
  - DRUG INEFFECTIVE [None]
